FAERS Safety Report 5103331-5 (Version None)
Quarter: 2006Q3

REPORT INFORMATION
  Report Type: 
  Country: None (occurrence: None)
  Receive Date: 20060731
  Receipt Date: 20060621
  Transmission Date: 20061208
  Serious: No
  Sender: FDA-Public Use
  Company Number: 2006PV016134

PATIENT
  Age: 35 Year
  Sex: Female

DRUGS (1)
  1. BYETTA [Suspect]
     Dosage: 5 MCG; QD; SC
     Route: 058
     Dates: start: 20060505

REACTIONS (2)
  - INJECTION SITE RASH [None]
  - MEDICATION ERROR [None]
